FAERS Safety Report 5310977-8 (Version None)
Quarter: 2007Q2

REPORT INFORMATION
  Report Type: 
  Country: None (occurrence: None)
  Receive Date: 20070427
  Receipt Date: 20070427
  Transmission Date: 20071010
  Serious: Yes (Hospitalization)
  Sender: FDA-Public Use
  Company Number: None

PATIENT
  Sex: Male
  Weight: 119.7496 kg

DRUGS (4)
  1. CIPRO [Suspect]
     Indication: ABSCESS LIMB
     Dosage: 500MG DAILY PO
     Route: 048
     Dates: start: 20070405, end: 20070417
  2. GLYBURIDE [Suspect]
     Indication: DIABETES MELLITUS NON-INSULIN-DEPENDENT
     Dosage: 10MG BID PO
     Route: 048
  3. GLYBURIDE [Suspect]
     Indication: OSTEOMYELITIS
     Dosage: 10MG BID PO
     Route: 048
  4. AVANDIA [Concomitant]

REACTIONS (3)
  - DEHYDRATION [None]
  - DIARRHOEA [None]
  - HYPOGLYCAEMIA [None]
